FAERS Safety Report 4681149-5 (Version None)
Quarter: 2005Q2

REPORT INFORMATION
  Report Type: 
  Country: None (occurrence: None)
  Receive Date: 20050602
  Receipt Date: 20050602
  Transmission Date: 20051028
  Serious: No
  Sender: FDA-Public Use
  Company Number: None

PATIENT
  Age: 50 Year
  Sex: Female
  Weight: 58.514 kg

DRUGS (3)
  1. PRILOSEC [Suspect]
     Indication: GASTROOESOPHAGEAL REFLUX DISEASE
     Dosage: DAILY ORAL
     Route: 048
     Dates: start: 20050401, end: 20050601
  2. INSULIN [Concomitant]
  3. SYNTHROID [Concomitant]

REACTIONS (1)
  - STOMACH DISCOMFORT [None]
